FAERS Safety Report 9490526 (Version 1)
Quarter: 2013Q3

REPORT INFORMATION
  Report Type: Spontaneous
  Country: JP (occurrence: None)
  Receive Date: 20130826
  Receipt Date: 20130826
  Transmission Date: 20140515
  Serious: Yes (Death, Hospitalization)
  Sender: FDA-Public Use
  Company Number: 150467

PATIENT
  Age: 66 Year
  Sex: Female

DRUGS (1)
  1. CEFTRIAXONE [Suspect]
     Indication: NEUROSYPHILIS

REACTIONS (10)
  - Acquired haemophilia [None]
  - Haematoma [None]
  - Gingival bleeding [None]
  - Epistaxis [None]
  - Activated partial thromboplastin time prolonged [None]
  - Shock [None]
  - Factor XIII deficiency [None]
  - Intra-abdominal haemorrhage [None]
  - Peritoneal haemorrhage [None]
  - Continuous haemodiafiltration [None]
